FAERS Safety Report 5636812-6 (Version None)
Quarter: 2008Q1

REPORT INFORMATION
  Report Type: 
  Country: None (occurrence: None)
  Receive Date: 20080220
  Receipt Date: 20080220
  Transmission Date: 20080703
  Serious: No
  Sender: FDA-Public Use
  Company Number: None

PATIENT
  Age: 43 Year
  Sex: Female
  Weight: 68.9467 kg

DRUGS (2)
  1. FOSAMAX PLUS D [Suspect]
     Indication: OSTEOPOROSIS
     Dosage: 70MG Q WEEK PO
     Route: 048
     Dates: start: 20070701, end: 20070721
  2. BONIVA [Suspect]
     Dosage: 150 MG Q MONTH PO
     Route: 048
     Dates: start: 20070801, end: 20071001

REACTIONS (4)
  - ARTHRALGIA [None]
  - GASTROOESOPHAGEAL REFLUX DISEASE [None]
  - MYALGIA [None]
  - PAIN IN EXTREMITY [None]
